FAERS Safety Report 11452551 (Version 1)
Quarter: 2015Q3

REPORT INFORMATION
  Report Type: Spontaneous
  Country: CA (occurrence: CA)
  Receive Date: 20150903
  Receipt Date: 20150903
  Transmission Date: 20151125
  Serious: Yes (Other)
  Sender: FDA-Public Use
  Company Number: CA-ROCHE-1629054

PATIENT
  Age: 71 Year
  Sex: Male

DRUGS (18)
  1. CLARITIN [Concomitant]
     Active Substance: LORATADINE
  2. LIPITOR [Concomitant]
     Active Substance: ATORVASTATIN CALCIUM
     Route: 065
  3. AMIODARONE [Concomitant]
     Active Substance: AMIODARONE
  4. SINGULAIR [Concomitant]
     Active Substance: MONTELUKAST SODIUM
  5. ADVAIR HFA [Concomitant]
     Active Substance: FLUTICASONE PROPIONATE\SALMETEROL XINAFOATE
  6. FLOVENT [Concomitant]
     Active Substance: FLUTICASONE PROPIONATE
  7. LIPITOR [Concomitant]
     Active Substance: ATORVASTATIN CALCIUM
     Route: 065
  8. NASONEX [Concomitant]
     Active Substance: MOMETASONE FUROATE
  9. PANTOPRAZOLE [Concomitant]
     Active Substance: PANTOPRAZOLE SODIUM
  10. XOLAIR [Suspect]
     Active Substance: OMALIZUMAB
     Route: 058
     Dates: start: 20111215
  11. XOLAIR [Suspect]
     Active Substance: OMALIZUMAB
     Route: 058
     Dates: start: 20140324
  12. SALBUTAMOL [Concomitant]
     Active Substance: ALBUTEROL
  13. XOLAIR [Suspect]
     Active Substance: OMALIZUMAB
     Indication: ASTHMA
     Route: 058
     Dates: start: 20101103
  14. CARDIZEM [Concomitant]
     Active Substance: DILTIAZEM HYDROCHLORIDE
  15. INFLUENZA VACCINE [Concomitant]
     Active Substance: INFLUENZA VIRUS VACCINE
     Route: 065
     Dates: start: 20121026
  16. TECTA [Concomitant]
     Active Substance: PANTOPRAZOLE MAGNESIUM
  17. PLAVIX [Concomitant]
     Active Substance: CLOPIDOGREL BISULFATE
  18. ENDOCET [Concomitant]
     Active Substance: ACETAMINOPHEN\OXYCODONE HYDROCHLORIDE

REACTIONS (18)
  - Nasal congestion [Unknown]
  - Inner ear disorder [Unknown]
  - Arthropathy [Unknown]
  - Dizziness [Unknown]
  - Productive cough [Not Recovered/Not Resolved]
  - Respiratory tract congestion [Unknown]
  - Diarrhoea [Unknown]
  - Wheezing [Unknown]
  - Injection site pain [Unknown]
  - Vomiting [Unknown]
  - Breath sounds abnormal [Unknown]
  - Cough [Not Recovered/Not Resolved]
  - Nasopharyngitis [Unknown]
  - Norovirus test positive [Unknown]
  - Lower respiratory tract infection [Not Recovered/Not Resolved]
  - Blood pressure diastolic decreased [Recovered/Resolved]
  - Muscle spasms [Unknown]
  - Dysphonia [Unknown]

NARRATIVE: CASE EVENT DATE: 20111215
